FAERS Safety Report 7122376-7 (Version None)
Quarter: 2010Q4

REPORT INFORMATION
  Report Type: 
  Country: None (occurrence: None)
  Receive Date: 20101124
  Receipt Date: 20101119
  Transmission Date: 20110411
  Serious: Yes (Hospitalization)
  Sender: FDA-Public Use
  Company Number: US-ALEXION-A201001398

PATIENT
  Sex: Female

DRUGS (10)
  1. SOLIRIS [Suspect]
     Indication: PAROXYSMAL NOCTURNAL HAEMOGLOBINURIA
     Dosage: UNK, Q2W
     Route: 042
     Dates: start: 20081001
  2. SOLIRIS [Suspect]
     Dosage: 900 MG, Q4WK
     Route: 042
  3. SOLIRIS [Suspect]
     Dosage: 900 MG, Q2W
     Route: 042
  4. FOLIC ACID [Concomitant]
     Dosage: 1 MG, BID
  5. VICODIN [Concomitant]
     Dosage: UNK
  6. PROZAC                             /00724401/ [Concomitant]
     Dosage: UNK
  7. COUMADIN [Concomitant]
     Dosage: 3 MG, QD
     Route: 042
  8. LASIX [Concomitant]
     Dosage: UNK
  9. SPIRONOLACTONE [Concomitant]
     Dosage: UNK
  10. FERROUS SULFATE [Concomitant]
     Dosage: 325 MG, QD

REACTIONS (5)
  - ABDOMINAL PAIN [None]
  - BACK PAIN [None]
  - HAEMOGLOBIN DECREASED [None]
  - JAUNDICE [None]
  - TREATMENT NONCOMPLIANCE [None]
